FAERS Safety Report 6447156-7 (Version None)
Quarter: 2009Q4

REPORT INFORMATION
  Report Type: 
  Country: None (occurrence: None)
  Receive Date: 20091119
  Receipt Date: 20091109
  Transmission Date: 20100525
  Serious: Yes (Other)
  Sender: FDA-Public Use
  Company Number: SE-PFIZER INC-2009270816

PATIENT
  Age: 15 Year
  Sex: Female
  Weight: 162 kg

DRUGS (2)
  1. ZOLOFT [Suspect]
     Indication: SOCIAL PHOBIA
     Dosage: UNK
     Dates: start: 20090530
  2. AMFETAMINE [Interacting]
     Indication: ATTENTION DEFICIT/HYPERACTIVITY DISORDER
     Dosage: 15 MG, 2X/DAY
     Dates: start: 20080201

REACTIONS (3)
  - INHIBITORY DRUG INTERACTION [None]
  - SHOPLIFTING [None]
  - SOCIAL PHOBIA [None]
